FAERS Safety Report 16841590 (Version 9)
Quarter: 2021Q2

REPORT INFORMATION
  Report Type: Report from Study
  Country: US (occurrence: US)
  Receive Date: 20190923
  Receipt Date: 20210608
  Transmission Date: 20210716
  Serious: Yes (Death, Life-Threatening, Hospitalization, Other)
  Sender: FDA-Public Use
  Company Number: US-GILEAD-2019-0386299

PATIENT
  Age: 69 Year
  Sex: Male
  Weight: 85.7 kg

DRUGS (27)
  1. SALIVA SUBSTITUTE [Concomitant]
     Active Substance: CARBOXYMETHYLCELLULOSE SODIUM\DEVICE\SORBINICATE
     Dosage: 15,ML,OTHER
     Route: 048
     Dates: start: 20190104, end: 20190122
  2. DIPHENHYDRAMINE. [Concomitant]
     Active Substance: DIPHENHYDRAMINE
     Dosage: 25,MG,DAILY
     Route: 041
     Dates: start: 20190105, end: 20190107
  3. SENNA ALEXANDRINA [Concomitant]
     Active Substance: SENNA LEAF
     Dosage: 2,OTHER,OTHER
     Route: 048
     Dates: start: 20190109, end: 20190116
  4. CYCLOPHOSPHAMIDE. [Suspect]
     Active Substance: CYCLOPHOSPHAMIDE
     Indication: BONE MARROW CONDITIONING REGIMEN
     Dosage: 500 MG/M2, QD
     Route: 042
     Dates: start: 20190105, end: 20190107
  5. ATORVASTATIN [Concomitant]
     Active Substance: ATORVASTATIN
     Dosage: 10,MG,DAILY
     Route: 048
     Dates: start: 20190104
  6. ONDANSETRON [Concomitant]
     Active Substance: ONDANSETRON
     Dosage: 16,MG,DAILY
     Route: 041
     Dates: start: 20190105, end: 20190107
  7. DIPHENHYDRAMINE. [Concomitant]
     Active Substance: DIPHENHYDRAMINE
     Dosage: 25,MG,DAILY
     Route: 041
     Dates: start: 20190110, end: 20190110
  8. MAGNESIUM SULFATE. [Concomitant]
     Active Substance: MAGNESIUM SULFATE
     Dosage: 2,G,OTHER
     Route: 041
     Dates: start: 20190116, end: 20190116
  9. BUMETANIDE. [Concomitant]
     Active Substance: BUMETANIDE
     Dosage: 2,MG,OTHER
     Route: 041
     Dates: start: 20190106, end: 20190106
  10. FLUDARABINE [Suspect]
     Active Substance: FLUDARABINE PHOSPHATE
     Indication: BONE MARROW CONDITIONING REGIMEN
     Dosage: 30 MG, QD
     Route: 042
     Dates: start: 20190105, end: 20190107
  11. SALIVA SUBSTITUTE [Concomitant]
     Active Substance: CARBOXYMETHYLCELLULOSE SODIUM\DEVICE\SORBINICATE
     Dosage: 20,ML,FOUR TIMES DAILY
     Route: 048
     Dates: start: 20190118, end: 20190120
  12. REPAGLINIDE. [Concomitant]
     Active Substance: REPAGLINIDE
     Dosage: 1,MG,THREE TIMES DAILY
     Route: 048
     Dates: start: 20190104
  13. AXICABTAGENE CILOLEUCEL [Suspect]
     Active Substance: AXICABTAGENE CILOLEUCEL
     Indication: B-CELL LYMPHOMA
     Dosage: 68 ML, ONCE
     Route: 042
     Dates: start: 20190110, end: 20190110
  14. LORAZEPAM. [Concomitant]
     Active Substance: LORAZEPAM
     Dosage: 1,MG,DAILY
     Route: 041
     Dates: start: 20190105, end: 20190107
  15. MAXIPIME [Concomitant]
     Active Substance: CEFEPIME HYDROCHLORIDE
     Dosage: UNK
     Dates: start: 20190104, end: 20190115
  16. PANTOPRAZOLE [Concomitant]
     Active Substance: PANTOPRAZOLE
     Dosage: 40,MG,DAILY
     Route: 050
     Dates: start: 20190104, end: 20190124
  17. ACYCLOVIR [ACICLOVIR] [Concomitant]
     Active Substance: ACYCLOVIR
     Dosage: 400,MG,OTHER
     Route: 048
     Dates: start: 20190104
  18. AMLODIPINE [Concomitant]
     Active Substance: AMLODIPINE BESYLATE
     Dosage: 10,MG,OTHER
     Route: 048
     Dates: start: 20190104
  19. ONDANSETRON [Concomitant]
     Active Substance: ONDANSETRON
     Dosage: 8,MG,OTHER
     Route: 041
     Dates: start: 20190115, end: 20190117
  20. MAGNESIUM SULFATE. [Concomitant]
     Active Substance: MAGNESIUM SULFATE
     Dosage: 1,G,OTHER
     Route: 041
     Dates: start: 20190121, end: 20190121
  21. HUMALOG [Concomitant]
     Active Substance: INSULIN LISPRO
     Dosage: UNK
     Dates: start: 20190117
  22. METFORMIN [Concomitant]
     Active Substance: METFORMIN HYDROCHLORIDE
     Dosage: 1000,MG,TWICE DAILY
     Route: 048
     Dates: start: 20190104, end: 20190117
  23. LORAZEPAM. [Concomitant]
     Active Substance: LORAZEPAM
     Dosage: 0.5,MG,OTHER
     Route: 041
     Dates: start: 20190115, end: 20190116
  24. MAGNESIUM SULFATE. [Concomitant]
     Active Substance: MAGNESIUM SULFATE
     Dosage: 2,G,AS NECESSARY
     Route: 041
     Dates: start: 20190106, end: 20190107
  25. VALSARTAN. [Concomitant]
     Active Substance: VALSARTAN
     Dosage: 160,MG,DAILY
     Route: 048
     Dates: start: 20190104, end: 20190117
  26. XYLOCAINE [Concomitant]
     Active Substance: LIDOCAINE HYDROCHLORIDE
     Dosage: 5,ML,OTHER
     Route: 058
     Dates: start: 20190105, end: 20190105
  27. SULFAMETHOXAZOLE AND TRIMETHOPRIM [Concomitant]
     Active Substance: SULFAMETHOXAZOLE\TRIMETHOPRIM
     Dosage: 800?160,MG,OTHER
     Route: 048
     Dates: start: 20190106, end: 20190120

REACTIONS (5)
  - Pseudomonal sepsis [Fatal]
  - Sepsis [Recovered/Resolved]
  - Sepsis [Recovered/Resolved]
  - Cytokine release syndrome [Recovered/Resolved]
  - Hypotension [Recovered/Resolved]

NARRATIVE: CASE EVENT DATE: 20190117
